FAERS Safety Report 6445323-X (Version None)
Quarter: 2009Q4

REPORT INFORMATION
  Report Type: 
  Country: None (occurrence: None)
  Receive Date: 20091118
  Receipt Date: 20091106
  Transmission Date: 20100525
  Serious: Yes (Death, Hospitalization)
  Sender: FDA-Public Use
  Company Number: DE-PFIZER INC-2009263847

PATIENT
  Age: 66 Year
  Sex: Female
  Weight: 50 kg

DRUGS (10)
  1. *ERLOTINIB [Suspect]
     Indication: NON-SMALL CELL LUNG CANCER
     Dosage: 100 MG, 1X/DAY
     Route: 048
     Dates: start: 20080614
  2. BLINDED *NO SUBJECT DRUG [Suspect]
     Indication: NON-SMALL CELL LUNG CANCER
     Dosage: 25 MG, 1X/DAY
     Route: 048
     Dates: start: 20080614
  3. BLINDED *PLACEBO [Suspect]
     Indication: NON-SMALL CELL LUNG CANCER
     Dosage: 25 MG, 1X/DAY
     Route: 048
     Dates: start: 20080614
  4. BLINDED SUNITINIB MALATE [Suspect]
     Indication: NON-SMALL CELL LUNG CANCER
     Dosage: 25 MG, 1X/DAY
     Route: 048
     Dates: start: 20080614
  5. AZOPT [Concomitant]
     Dosage: UNK
     Route: 048
     Dates: start: 20080101
  6. OMEPRAZOLE [Concomitant]
     Dosage: UNK
     Route: 048
     Dates: start: 20070901
  7. COLECALCIFEROL [Concomitant]
     Dosage: UNK
     Route: 048
     Dates: start: 20070901
  8. RAMIPRIL [Concomitant]
     Dosage: UNK
     Route: 048
     Dates: start: 20030101
  9. AMLODIPINE [Concomitant]
     Dosage: UNK
     Route: 048
     Dates: start: 20010101
  10. PRAVASTATIN [Concomitant]
     Dosage: UNK
     Route: 048
     Dates: start: 20040101

REACTIONS (2)
  - NEOPLASM PROGRESSION [None]
  - NON-SMALL CELL LUNG CANCER [None]
